FAERS Safety Report 24904341 (Version 1)
Quarter: 2025Q1

REPORT INFORMATION
  Report Type: Spontaneous
  Country: US (occurrence: None)
  Receive Date: 20250129
  Receipt Date: 20250129
  Transmission Date: 20250409
  Serious: No
  Sender: FDA-CTU
  Company Number: None

PATIENT
  Age: 56 Year
  Sex: Female
  Weight: 117 kg

DRUGS (1)
  1. PANZYGA [Suspect]
     Active Substance: HUMAN IMMUNOGLOBULIN G
     Indication: Encephalomyelitis
     Route: 042
     Dates: start: 20250128, end: 20250128

REACTIONS (3)
  - Rash pruritic [None]
  - Urticaria [None]
  - Flushing [None]

NARRATIVE: CASE EVENT DATE: 20250128
